FAERS Safety Report 19684778 (Version 1)
Quarter: 2021Q3

REPORT INFORMATION
  Report Type: Spontaneous
  Country: US (occurrence: US)
  Receive Date: 20210810
  Receipt Date: 20210810
  Transmission Date: 20211014
  Serious: Yes (Hospitalization)
  Sender: FDA-Public Use
  Company Number: None

PATIENT
  Age: 76 Year
  Sex: Male
  Weight: 90 kg

DRUGS (1)
  1. ALIMTA [Suspect]
     Active Substance: PEMETREXED DISODIUM
     Dates: end: 20210713

REACTIONS (13)
  - Decreased appetite [None]
  - Dehydration [None]
  - Pancytopenia [None]
  - Anaemia [None]
  - Asthenia [None]
  - Malnutrition [None]
  - Oesophageal candidiasis [None]
  - White blood cell count decreased [None]
  - Neutrophil count decreased [None]
  - Pneumonia [None]
  - Atrial fibrillation [None]
  - Fatigue [None]
  - Platelet count decreased [None]

NARRATIVE: CASE EVENT DATE: 20210718
